FAERS Safety Report 6409362-7 (Version None)
Quarter: 2009Q4

REPORT INFORMATION
  Report Type: 
  Country: None (occurrence: None)
  Receive Date: 20091021
  Receipt Date: 20091008
  Transmission Date: 20100525
  Serious: Yes (Life-Threatening)
  Sender: FDA-Public Use
  Company Number: FR-GENENTECH-292282

PATIENT
  Sex: Male

DRUGS (1)
  1. MABTHERA [Suspect]
     Indication: NEOPLASM MALIGNANT
     Dosage: 750 MG, UNK
     Route: 042
     Dates: start: 20090713, end: 20090713

REACTIONS (3)
  - HYPERTENSION [None]
  - HYPERTHERMIA [None]
  - TREMOR [None]
